FAERS Safety Report 21774641 (Version 1)
Quarter: 2022Q4

REPORT INFORMATION
  Report Type: Spontaneous
  Country: CA (occurrence: CA)
  Receive Date: 20221224
  Receipt Date: 20221224
  Transmission Date: 20230113
  Serious: Yes (Other)
  Sender: FDA-Public Use
  Company Number: None

PATIENT
  Age: 35 Year
  Sex: Female

DRUGS (2)
  1. METHOTREXATE [Suspect]
     Active Substance: METHOTREXATE
     Indication: Crohn^s disease
     Dosage: 1 EVERY 1 WEEKS
     Route: 058
  2. DEXLANSOPRAZOLE [Concomitant]
     Active Substance: DEXLANSOPRAZOLE
     Dosage: CAPSULE, DELAYED RELEASE, EVERY 1 DAYS
     Route: 048

REACTIONS (11)
  - Abdominal distension [Unknown]
  - Abdominal pain [Unknown]
  - Arthralgia [Unknown]
  - Back pain [Unknown]
  - Crohn^s disease [Unknown]
  - Diarrhoea [Unknown]
  - Fatigue [Unknown]
  - Inflammation [Unknown]
  - Synovial cyst [Unknown]
  - Weight decreased [Unknown]
  - Off label use [Unknown]
